FAERS Safety Report 12969536 (Version 4)
Quarter: 2017Q2

REPORT INFORMATION
  Report Type: Report from Study
  Country: IT (occurrence: IT)
  Receive Date: 20161123
  Receipt Date: 20170509
  Transmission Date: 20170830
  Serious: Yes (Hospitalization)
  Sender: FDA-Public Use
  Company Number: IT-009507513-1611ITA008831

PATIENT
  Age: 88 Year
  Sex: Male

DRUGS (12)
  1. FUROSEMIDE. [Concomitant]
     Active Substance: FUROSEMIDE
     Dosage: UNK
     Route: 048
  2. ISOSORBIDE MONONITRATE. [Concomitant]
     Active Substance: ISOSORBIDE MONONITRATE
     Indication: MYOCARDIAL ISCHAEMIA
     Dosage: 40 MG, UNK
     Route: 048
  3. GARDENALE [Concomitant]
     Active Substance: PHENOBARBITAL
     Dosage: UNK
  4. ATARAX [Suspect]
     Active Substance: HYDROXYZINE HYDROCHLORIDE
     Dosage: UNK
     Route: 048
     Dates: start: 20161026
  5. REMERON [Suspect]
     Active Substance: MIRTAZAPINE
     Dosage: 15 MG, DAILY
     Route: 048
     Dates: start: 20161026
  6. DEPAKINE CHRONO [Suspect]
     Active Substance: VALPROATE SODIUM
     Dosage: 300 MG, DAILY
     Route: 048
     Dates: start: 20161026
  7. CARDIRENE [Concomitant]
     Active Substance: ASPIRIN DL-LYSINE
     Indication: MYOCARDIAL ISCHAEMIA
     Dosage: 160 MG, UNK
     Route: 048
  8. LUVION (CANRENOATE POTASSIUM) [Concomitant]
     Dosage: 25 MG, UNK
     Route: 048
  9. ALPRAZOLAM. [Concomitant]
     Active Substance: ALPRAZOLAM
     Dosage: UNK
     Route: 048
     Dates: start: 20161020
  10. SIMVASTATIN. [Concomitant]
     Active Substance: SIMVASTATIN
     Dosage: 20 MG, UNK
  11. RAMIPRIL. [Concomitant]
     Active Substance: RAMIPRIL
     Dosage: 2.5 MG, UNK
  12. TRITTICO [Concomitant]
     Active Substance: TRAZODONE HYDROCHLORIDE
     Dosage: UNK
     Route: 048
     Dates: start: 20161020

REACTIONS (1)
  - Sopor [Not Recovered/Not Resolved]

NARRATIVE: CASE EVENT DATE: 20161027
